FAERS Safety Report 9889983 (Version 1)
Quarter: 2014Q1

REPORT INFORMATION
  Report Type: Report from Study
  Country: US (occurrence: US)
  Receive Date: 20140212
  Receipt Date: 20140212
  Transmission Date: 20141002
  Serious: Yes (Other)
  Sender: FDA-Public Use
  Company Number: US-ACTELION-A-NJ2014-94438

PATIENT
  Age: 72 Year
  Sex: Female

DRUGS (3)
  1. MACITENTAN [Suspect]
     Indication: PULMONARY HYPERTENSION
     Dosage: 10 MG, UNK
     Route: 048
  2. TYVASO [Concomitant]
  3. COUMADIN [Concomitant]

REACTIONS (2)
  - Lymphoma [Unknown]
  - Urate nephropathy [Unknown]
